FAERS Safety Report 19082695 (Version 1)
Quarter: 2021Q2

REPORT INFORMATION
  Report Type: Spontaneous
  Country: US (occurrence: US)
  Receive Date: 20210401
  Receipt Date: 20210401
  Transmission Date: 20210717
  Serious: No
  Sender: FDA-Public Use
  Company Number: US-B.I. PHARMACEUTICALS,INC./RIDGEFIELD-2020-US-043659

PATIENT
  Age: 72 Year
  Sex: Female

DRUGS (1)
  1. OFEV [Suspect]
     Active Substance: NINTEDANIB
     Indication: IDIOPATHIC PULMONARY FIBROSIS
     Route: 048
     Dates: start: 20200707, end: 20200820

REACTIONS (8)
  - Headache [Unknown]
  - Eye pain [Unknown]
  - Oropharyngeal discomfort [Unknown]
  - Hypertension [Unknown]
  - Diarrhoea [Unknown]
  - Liver disorder [Unknown]
  - Throat clearing [Unknown]
  - Decreased appetite [Unknown]

NARRATIVE: CASE EVENT DATE: 2020
